FAERS Safety Report 15537807 (Version 3)
Quarter: 2020Q4

REPORT INFORMATION
  Report Type: Spontaneous
  Country: FR (occurrence: FR)
  Receive Date: 20181022
  Receipt Date: 20201207
  Transmission Date: 20210113
  Serious: Yes (Hospitalization, Other)
  Sender: FDA-Public Use
  Company Number: PHHY2018FR131207

PATIENT
  Sex: Female
  Weight: 56 kg

DRUGS (1)
  1. TACROLIMUS. [Suspect]
     Active Substance: TACROLIMUS
     Indication: PROPHYLAXIS
     Dosage: 14.5 MG, QD
     Route: 048
     Dates: start: 20170918

REACTIONS (3)
  - BK polyomavirus test positive [Recovered/Resolved]
  - BK polyomavirus test positive [Not Recovered/Not Resolved]
  - Polyomavirus-associated nephropathy [Recovering/Resolving]

NARRATIVE: CASE EVENT DATE: 20180325
